FAERS Safety Report 8452834-4 (Version None)
Quarter: 2012Q2

REPORT INFORMATION
  Report Type: 
  Country: None (occurrence: None)
  Receive Date: 20120620
  Receipt Date: 20120502
  Transmission Date: 20120825
  Serious: No
  Sender: FDA-Public Use
  Company Number: US-VERTEX PHARMACEUTICALS INC.-AE-2012-006198

PATIENT
  Sex: Female
  Weight: 74.91 kg

DRUGS (6)
  1. INCIVEK [Suspect]
     Indication: HEPATITIS
     Route: 048
     Dates: start: 20120427
  2. RIBAVIRIN [Concomitant]
     Indication: HEPATITIS C
     Route: 048
     Dates: start: 20120427
  3. ACETAZOLAMIDE [Concomitant]
     Route: 048
  4. PEGASYS [Concomitant]
     Indication: HEPATITIS C
     Route: 058
     Dates: start: 20120427
  5. DIOVAN [Concomitant]
     Route: 048
  6. LEVEMIR [Concomitant]
     Indication: DIABETES MELLITUS
     Route: 058

REACTIONS (4)
  - BLOOD GLUCOSE INCREASED [None]
  - DECREASED APPETITE [None]
  - FATIGUE [None]
  - WEIGHT DECREASED [None]
